FAERS Safety Report 8954067 (Version 2)
Quarter: 2012Q4

REPORT INFORMATION
  Report Type: 
  Country: IN (occurrence: IN)
  Receive Date: 20121207
  Receipt Date: 20121212
  Transmission Date: 20130627
  Serious: Yes (Death, Hospitalization)
  Sender: FDA-Public Use
  Company Number: PHHY2012IN112636

PATIENT
  Age: 85 Year
  Sex: Female

DRUGS (2)
  1. ACLASTA [Suspect]
     Indication: OSTEOPOROSIS
     Dosage: 5 mg, yearly
     Route: 042
     Dates: start: 2010
  2. ACLASTA [Suspect]
     Dosage: 5 mg, yearly
     Route: 042
     Dates: start: 2011

REACTIONS (3)
  - Varicella [Fatal]
  - Lower limb fracture [Unknown]
  - Decubitus ulcer [Unknown]
